FAERS Safety Report 17930699 (Version 3)
Quarter: 2020Q3

REPORT INFORMATION
  Report Type: Spontaneous
  Country: CA (occurrence: CA)
  Receive Date: 20200623
  Receipt Date: 20200725
  Transmission Date: 20201103
  Serious: Yes (Other)
  Sender: FDA-Public Use
  Company Number: CA-UNITED THERAPEUTICS-UNT-2020-008899

PATIENT
  Age: 26 Year
  Sex: Female
  Weight: 83 kg

DRUGS (5)
  1. PREDNISONE. [Concomitant]
     Active Substance: PREDNISONE
     Indication: PULMONARY HAEMOSIDEROSIS
     Route: 065
  2. AZATHIOPRINE. [Concomitant]
     Active Substance: AZATHIOPRINE
     Indication: PULMONARY HAEMOSIDEROSIS
     Route: 065
  3. REMODULIN [Suspect]
     Active Substance: TREPROSTINIL
     Indication: PULMONARY HYPERTENSION
     Dosage: 0.020 ?G/KG, CONTINUING
     Route: 058
     Dates: start: 201603, end: 201708
  4. TADALAFIL. [Concomitant]
     Active Substance: TADALAFIL
     Indication: PULMONARY HYPERTENSION
     Dosage: UNK
     Route: 065
  5. AMBRISENTAN [Concomitant]
     Active Substance: AMBRISENTAN
     Indication: PULMONARY HYPERTENSION
     Dosage: UNK
     Route: 065

REACTIONS (6)
  - Pulmonary hypertension [Unknown]
  - Transplant dysfunction [Unknown]
  - Pulmonary haemosiderosis [Unknown]
  - Pulmonary syphilis [Recovered/Resolved]
  - Off label use [Unknown]
  - Rash macular [Unknown]

NARRATIVE: CASE EVENT DATE: 201708
